FAERS Safety Report 25240119 (Version 3)
Quarter: 2025Q4

REPORT INFORMATION
  Report Type: Report from Study
  Country: JP (occurrence: JP)
  Receive Date: 20250425
  Receipt Date: 20251022
  Transmission Date: 20260117
  Serious: Yes (Other)
  Sender: ALEXION PHARMACEUTICALS
  Company Number: JP-ASTRAZENECA-240014167_011820_P_1

PATIENT
  Age: 17 Year
  Sex: Female
  Weight: 46.6 kg

DRUGS (1)
  1. KOSELUGO [Suspect]
     Active Substance: SELUMETINIB
     Indication: Neurofibromatosis
     Dosage: 70 MILLIGRAM, QD
     Dates: start: 20240111, end: 20240127

REACTIONS (4)
  - Acne [Recovered/Resolved]
  - Gait disturbance [Recovered/Resolved]
  - Diarrhoea [Recovered/Resolved]
  - Scoliosis [Unknown]

NARRATIVE: CASE EVENT DATE: 20240113
